FAERS Safety Report 8036343-2 (Version None)
Quarter: 2012Q1

REPORT INFORMATION
  Report Type: 
  Country: None (occurrence: None)
  Receive Date: 20120111
  Receipt Date: 20111130
  Transmission Date: 20120608
  Serious: No
  Sender: FDA-Public Use
  Company Number: US-GLAXOSMITHKLINE-A0956055A

PATIENT
  Age: 73 Year
  Sex: Male

DRUGS (5)
  1. CO-Q10 [Concomitant]
  2. CALCIUM CARBONATE [Concomitant]
  3. ASPIRIN [Concomitant]
  4. JALYN [Suspect]
     Indication: PROSTATOMEGALY
     Dosage: 1CAP PER DAY
     Route: 048
     Dates: start: 20111129
  5. XANAX [Concomitant]

REACTIONS (2)
  - GASTROOESOPHAGEAL REFLUX DISEASE [None]
  - FEELING JITTERY [None]
